FAERS Safety Report 17676463 (Version 1)
Quarter: 2020Q2

REPORT INFORMATION
  Report Type: Spontaneous
  Country: DE (occurrence: DE)
  Receive Date: 20200416
  Receipt Date: 20200416
  Transmission Date: 20200714
  Serious: Yes (Hospitalization)
  Sender: FDA-Public Use
  Company Number: DE-TEVA-2020-DE-1224249

PATIENT
  Age: 10 Month
  Sex: Male
  Weight: 9.5 kg

DRUGS (3)
  1. FLUTIDE 125 MICROGRAM (FLUTICASONE PROPIONATE) [Suspect]
     Active Substance: FLUTICASONE PROPIONATE
     Indication: RESPIRATORY SYNCYTIAL VIRUS BRONCHITIS
  2. FLUTIDE 125 MICROGRAM (FLUTICASONE PROPIONATE) [Suspect]
     Active Substance: FLUTICASONE PROPIONATE
     Indication: BRONCHIAL OBSTRUCTION
     Dosage: 1 STROKE 2X DAILY
     Route: 048
  3. CEFACLOR. [Suspect]
     Active Substance: CEFACLOR
     Route: 065

REACTIONS (3)
  - Vomiting [Recovered/Resolved]
  - Hypophagia [Recovered/Resolved]
  - Diarrhoea [Recovered/Resolved]

NARRATIVE: CASE EVENT DATE: 20200129
